FAERS Safety Report 13347067 (Version 2)
Quarter: 2017Q1

REPORT INFORMATION
  Report Type: Spontaneous
  Country: CA (occurrence: CA)
  Receive Date: 20170317
  Receipt Date: 20170328
  Transmission Date: 20170428
  Serious: Yes (Hospitalization)
  Sender: FDA-Public Use
  Company Number: CA-UNITED THERAPEUTICS-UNT-2016-019306

PATIENT
  Age: 65 Year
  Sex: Female

DRUGS (5)
  1. REMODULIN [Suspect]
     Active Substance: TREPROSTINIL
     Dosage: 0.026 ML/HR
     Route: 058
  2. REMODULIN [Suspect]
     Active Substance: TREPROSTINIL
     Indication: PULMONARY ARTERIAL HYPERTENSION
     Dosage: 0.020 ML/HR
     Route: 058
     Dates: start: 20161115
  3. ADALAT [Suspect]
     Active Substance: NIFEDIPINE
     Indication: PRODUCT USED FOR UNKNOWN INDICATION
     Route: 065
  4. REMODULIN [Suspect]
     Active Substance: TREPROSTINIL
     Dosage: 0.030 ML/HR
     Route: 058
  5. REMODULIN [Suspect]
     Active Substance: TREPROSTINIL
     Dosage: 0.040 ML/HR
     Route: 058

REACTIONS (10)
  - Infusion site oedema [Not Recovered/Not Resolved]
  - Pulmonary oedema [Unknown]
  - Diarrhoea [Not Recovered/Not Resolved]
  - Peripheral swelling [Not Recovered/Not Resolved]
  - Dyspnoea [Recovering/Resolving]
  - Blood pressure decreased [Recovered/Resolved]
  - Abdominal distension [Not Recovered/Not Resolved]
  - Fatigue [Not Recovered/Not Resolved]
  - Sinusitis [Not Recovered/Not Resolved]
  - Infusion site pain [Not Recovered/Not Resolved]

NARRATIVE: CASE EVENT DATE: 20161115
